FAERS Safety Report 9288607 (Version 1)
Quarter: 2013Q2

REPORT INFORMATION
  Report Type: Report from Study
  Country: AT (occurrence: AT)
  Receive Date: 20130514
  Receipt Date: 20130514
  Transmission Date: 20140414
  Serious: Yes (Death, Life-Threatening, Hospitalization)
  Sender: FDA-Public Use
  Company Number: AT-TEVA-404755USA

PATIENT
  Age: 65 Year
  Sex: Male

DRUGS (35)
  1. TREANDA [Suspect]
     Route: 042
     Dates: start: 20120109, end: 20120206
  2. TREANDA [Suspect]
     Route: 042
     Dates: start: 20120207
  3. TREANDA [Suspect]
     Route: 042
     Dates: start: 20120228
  4. TREANDA [Suspect]
     Route: 042
     Dates: start: 20120411
  5. TREANDA [Suspect]
     Route: 042
     Dates: start: 20120522
  6. TREANDA [Suspect]
     Route: 042
     Dates: start: 20120611
  7. TREANDA [Suspect]
     Route: 042
     Dates: start: 20120709
  8. TREANDA [Suspect]
     Route: 042
     Dates: start: 20120828
  9. TREANDA [Suspect]
     Route: 042
     Dates: start: 20121120
  10. TREANDA [Suspect]
     Route: 042
     Dates: start: 20121218
  11. TREANDA [Suspect]
     Route: 042
     Dates: start: 201302
  12. VELCADE [Suspect]
     Route: 058
     Dates: start: 20100419, end: 20100429
  13. VELCADE [Suspect]
     Route: 058
     Dates: start: 20100511, end: 20100610
  14. VELCADE [Suspect]
     Route: 058
     Dates: start: 20100712, end: 20100719
  15. VELCADE [Suspect]
     Route: 058
     Dates: start: 20100802, end: 20100812
  16. VELCADE [Suspect]
     Route: 058
     Dates: start: 201009, end: 20101028
  17. VELCADE [Suspect]
     Route: 058
     Dates: start: 201302
  18. VELCADE [Suspect]
     Route: 058
     Dates: start: 20130205
  19. VELCADE [Suspect]
     Route: 058
     Dates: start: 200609
  20. LENALIDOMIDE [Suspect]
     Indication: PLASMA CELL MYELOMA
     Dates: start: 20121016
  21. LENALIDOMIDE [Suspect]
     Dates: start: 20121120
  22. LENALIDOMIDE [Suspect]
     Dates: start: 20121218
  23. DEXAMETHASONE [Suspect]
     Indication: PLASMA CELL MYELOMA
     Dates: start: 200607
  24. DEXAMETHASONE [Suspect]
     Dates: start: 20121120
  25. DEXAMETHASONE [Suspect]
     Dates: start: 20121218
  26. DEXAMETHASONE [Suspect]
     Dates: start: 200609
  27. DEXAMETHASONE [Suspect]
     Dates: start: 20110930
  28. DEXAMETHASONE [Suspect]
     Dates: start: 20121016
  29. DEXAMETHASONE [Suspect]
     Dates: start: 20121120
  30. DEXAMETHASONE [Suspect]
     Dates: start: 20121218
  31. DEXAMETHASONE [Suspect]
     Dates: start: 201302
  32. AMOXICILLIN W/CLAVULANATE POTASSIUM [Concomitant]
     Dates: start: 20110928
  33. VORINOSTAT [Concomitant]
  34. BISPHOSPHONATES [Concomitant]
     Dates: start: 20070301
  35. THROMBO ASS [Concomitant]
     Dates: start: 201109

REACTIONS (5)
  - Respiratory failure [Fatal]
  - Lung infiltration [Fatal]
  - Urinary tract infection [Unknown]
  - Infection [Unknown]
  - Renal impairment [Unknown]
